FAERS Safety Report 9016123 (Version 1)
Quarter: 2013Q1

REPORT INFORMATION
  Report Type: Spontaneous
  Country: TW (occurrence: TW)
  Receive Date: 20130116
  Receipt Date: 20130116
  Transmission Date: 20140127
  Serious: Yes (Other)
  Sender: FDA-Public Use
  Company Number: TW-MYLANLABS-2013S1000452

PATIENT
  Age: 62 Year
  Sex: Female

DRUGS (6)
  1. ARIPIPRAZOLE [Suspect]
     Indication: DEPRESSION
     Dosage: 5MG EVERY OTHER DAY
     Route: 065
  2. FLUOXETINE [Interacting]
     Indication: DEPRESSION
     Dosage: 40 MG/DAY; THEN TITRATED UP TO 60 MG/DAY
     Route: 065
  3. FLUOXETINE [Interacting]
     Indication: DEPRESSION
     Dosage: 60 MG/DAY
     Route: 065
  4. PROPRANOLOL [Concomitant]
     Indication: HYPERTENSION
     Dosage: 30 MG/DAY
     Route: 065
  5. CLONAZEPAM [Concomitant]
     Indication: DEPRESSION
     Dosage: 2 MG/DAY
     Route: 065
  6. BUPROPION [Concomitant]
     Indication: DEPRESSION
     Dosage: 150 MG/DAY
     Route: 065

REACTIONS (2)
  - Hypomania [Recovered/Resolved]
  - Drug interaction [Recovered/Resolved]
